FAERS Safety Report 8104482-3 (Version None)
Quarter: 2012Q1

REPORT INFORMATION
  Report Type: 
  Country: None (occurrence: None)
  Receive Date: 20120130
  Receipt Date: 20120130
  Transmission Date: 20120608
  Serious: Yes (Hospitalization, Congenital Anomaly, Other)
  Sender: FDA-Public Use
  Company Number: GB-JNJFOC-20110300208

PATIENT
  Age: 7 Week
  Sex: Female

DRUGS (3)
  1. STEROIDS NOS [Concomitant]
     Indication: EXPOSURE VIA FATHER
     Route: 064
  2. REMICADE [Suspect]
     Indication: EXPOSURE VIA FATHER
     Route: 064
  3. 5-AMINOSALICYLIC ACID [Concomitant]
     Indication: EXPOSURE VIA FATHER
     Route: 064

REACTIONS (1)
  - FEMALE GENITAL TRACT FISTULA [None]
